FAERS Safety Report 6437254-6 (Version None)
Quarter: 2009Q4

REPORT INFORMATION
  Report Type: 
  Country: None (occurrence: None)
  Receive Date: 20091112
  Receipt Date: 20091029
  Transmission Date: 20100525
  Serious: Yes (Death)
  Sender: FDA-Public Use
  Company Number: SE-ROCHE-666124

PATIENT
  Age: 62 Year
  Sex: Male

DRUGS (1)
  1. XELODA [Suspect]
     Dosage: DOSE: 3GMD
     Route: 048
     Dates: start: 20090831, end: 20090914

REACTIONS (1)
  - CARDIAC ARREST [None]
